FAERS Safety Report 7210145-9 (Version None)
Quarter: 2011Q1

REPORT INFORMATION
  Report Type: 
  Country: None (occurrence: None)
  Receive Date: 20110105
  Receipt Date: 20101223
  Transmission Date: 20110831
  Serious: Yes (Hospitalization)
  Sender: FDA-Public Use
  Company Number: GB-ELI_LILLY_AND_COMPANY-GB201012006442

PATIENT
  Age: 6 Year
  Sex: Male
  Weight: 20.8 kg

DRUGS (1)
  1. STRATTERA [Suspect]
     Dosage: 40 MG, UNK
     Dates: end: 20101208

REACTIONS (4)
  - EMOTIONAL DISORDER [None]
  - OVERDOSE [None]
  - HALLUCINATION [None]
  - TREMOR [None]
